FAERS Safety Report 5741537-2 (Version None)
Quarter: 2008Q2

REPORT INFORMATION
  Report Type: 
  Country: None (occurrence: None)
  Receive Date: 20080519
  Receipt Date: 20080325
  Transmission Date: 20081010
  Serious: No
  Sender: FDA-Public Use
  Company Number: US-BAYER-200817453NA

PATIENT
  Sex: Male

DRUGS (1)
  1. ULTRAVIST 300 [Suspect]
     Route: 042
     Dates: start: 20080314, end: 20080314

REACTIONS (2)
  - ERYTHEMA [None]
  - VOMITING [None]
